FAERS Safety Report 22031608 (Version 2)
Quarter: 2023Q2

REPORT INFORMATION
  Report Type: Spontaneous
  Country: US (occurrence: US)
  Receive Date: 20230224
  Receipt Date: 20230410
  Transmission Date: 20230722
  Serious: Yes (Death, Hospitalization, Other)
  Sender: FDA-Public Use
  Company Number: US-IPCA LABORATORIES LIMITED-IPC-2023-US-000299

PATIENT

DRUGS (1)
  1. ALLOPURINOL [Suspect]
     Active Substance: ALLOPURINOL
     Indication: Gout
     Dosage: UNK
     Route: 065

REACTIONS (5)
  - Haemorrhage intracranial [Fatal]
  - Drug reaction with eosinophilia and systemic symptoms [Recovered/Resolved]
  - Facial paralysis [Recovered/Resolved]
  - Cerebellar infarction [Recovered/Resolved]
  - Encephalopathy [Recovered/Resolved]
